FAERS Safety Report 9143918 (Version 2)
Quarter: 2013Q2

REPORT INFORMATION
  Report Type: Spontaneous
  Country: BE (occurrence: BE)
  Receive Date: 20130306
  Receipt Date: 20130417
  Transmission Date: 20140414
  Serious: Yes (Hospitalization)
  Sender: FDA-Public Use
  Company Number: PHHY2013BE020755

PATIENT
  Age: 17 Year
  Sex: Male

DRUGS (2)
  1. MINOCYCLINE SANDOZ [Suspect]
     Indication: ACNE
     Dosage: 50 MG, QD
     Route: 048
     Dates: start: 201209, end: 20130222
  2. MINOCYCLINE SANDOZ [Suspect]

REACTIONS (5)
  - Hypersomnia [Not Recovered/Not Resolved]
  - Myalgia [Not Recovered/Not Resolved]
  - Intracranial pressure increased [Not Recovered/Not Resolved]
  - Headache [Not Recovered/Not Resolved]
  - General physical health deterioration [None]
